FAERS Safety Report 20109111 (Version 1)
Quarter: 2021Q4

REPORT INFORMATION
  Report Type: Spontaneous
  Country: FR (occurrence: FR)
  Receive Date: 20211124
  Receipt Date: 20211124
  Transmission Date: 20220303
  Serious: Yes (Death)
  Sender: FDA-Public Use
  Company Number: FR-BAXTER-2021BAX036824

PATIENT
  Sex: Female

DRUGS (19)
  1. WATER [Suspect]
     Active Substance: WATER
     Indication: Parenteral nutrition
     Route: 065
     Dates: start: 202111
  2. AMINO ACIDS, SOURCE UNSPECIFIED [Suspect]
     Active Substance: AMINO ACIDS, SOURCE UNSPECIFIED
     Indication: Parenteral nutrition
     Route: 065
     Dates: start: 202111
  3. CERNEVIT [Suspect]
     Active Substance: VITAMINS
     Indication: Parenteral nutrition
     Route: 065
     Dates: start: 202111
  4. DEXTROSE [Suspect]
     Active Substance: DEXTROSE
     Indication: Parenteral nutrition
     Route: 065
     Dates: start: 202111
  5. CALCIUM GLUCONATE [Suspect]
     Active Substance: CALCIUM GLUCONATE
     Indication: Parenteral nutrition
     Route: 065
     Dates: start: 202111
  6. KCL [Suspect]
     Active Substance: POTASSIUM CHLORIDE
     Indication: Parenteral nutrition
     Route: 065
     Dates: start: 202111
  7. SODIUM CHLORIDE [Suspect]
     Active Substance: SODIUM CHLORIDE
     Indication: Parenteral nutrition
     Route: 065
     Dates: start: 202111
  8. MAGNESIUM SULFATE [Suspect]
     Active Substance: MAGNESIUM SULFATE
     Indication: Parenteral nutrition
     Route: 065
     Dates: start: 202111
  9. PHOCYTAN [Suspect]
     Active Substance: .ALPHA.-GLUCOSE-1-PHOSPHATE
     Indication: Parenteral nutrition
     Route: 065
     Dates: start: 202111
  10. IRON\MINERALS\POTASSIUM IOD\SODIUM FLUORIDE\SODIUM MOLYBDATE\SODIUM SE [Suspect]
     Active Substance: IRON\MINERALS\POTASSIUM IOD\SODIUM FLUORIDE\SODIUM MOLYBDATE\SODIUM SELENITE\ZINC
     Indication: Parenteral nutrition
     Route: 065
     Dates: start: 202111
  11. ZINC [Suspect]
     Active Substance: ZINC
     Indication: Parenteral nutrition
     Route: 065
     Dates: start: 202111
  12. SELENIUM [Suspect]
     Active Substance: SELENIUM
     Indication: Parenteral nutrition
     Route: 065
     Dates: start: 202111
  13. VITAMIN K1 [Suspect]
     Active Substance: PHYTONADIONE
     Indication: Parenteral nutrition
     Route: 065
     Dates: start: 202111
  14. THIAMINE HYDROCHLORIDE [Suspect]
     Active Substance: THIAMINE HYDROCHLORIDE
     Indication: Parenteral nutrition
     Route: 065
     Dates: start: 202111
  15. VITAMIN B6 [Suspect]
     Active Substance: PYRIDOXINE HYDROCHLORIDE
     Indication: Parenteral nutrition
     Route: 065
     Dates: start: 202111
  16. VITAMIN C [Suspect]
     Active Substance: ASCORBIC ACID
     Indication: Parenteral nutrition
     Route: 065
     Dates: start: 202111
  17. ERGOCALCIFEROL\PHYTONADIONE\RETINOL\TOCOPHEROL [Suspect]
     Active Substance: ERGOCALCIFEROL\PHYTONADIONE\RETINOL\TOCOPHEROL
     Indication: Parenteral nutrition
     Route: 065
     Dates: start: 202111
  18. .ALPHA.-TOCOPHEROL ACETATE [Suspect]
     Active Substance: .ALPHA.-TOCOPHEROL ACETATE
     Indication: Parenteral nutrition
     Route: 065
     Dates: start: 202111
  19. MEDIUM-CHAIN TRIGLYCERIDES\SOYBEAN OIL [Suspect]
     Active Substance: MEDIUM-CHAIN TRIGLYCERIDES\SOYBEAN OIL
     Indication: Parenteral nutrition
     Route: 065
     Dates: start: 202111

REACTIONS (1)
  - Death [Fatal]

NARRATIVE: CASE EVENT DATE: 20211114
